FAERS Safety Report 6663422-4 (Version None)
Quarter: 2010Q2

REPORT INFORMATION
  Report Type: 
  Country: None (occurrence: None)
  Receive Date: 20100401
  Receipt Date: 20100325
  Transmission Date: 20101027
  Serious: Yes (Death, Hospitalization)
  Sender: FDA-Public Use
  Company Number: FR-AMGEN-QUU401790

PATIENT
  Sex: Male

DRUGS (10)
  1. VECTIBIX [Suspect]
     Indication: COLORECTAL CANCER
     Route: 058
     Dates: start: 20091125
  2. DOXYCYCLINE [Concomitant]
     Route: 048
     Dates: start: 20091127
  3. ALFUZOSIN HCL [Concomitant]
     Route: 048
  4. GLUCOPHAGE [Concomitant]
     Route: 048
  5. LASIX [Concomitant]
     Route: 048
  6. TENORMIN [Concomitant]
     Route: 048
  7. ELISOR [Concomitant]
     Route: 048
  8. FOSINOPRIL SODIUM [Concomitant]
     Route: 048
  9. GLYBURIDE [Concomitant]
     Route: 048
  10. KARDEGIC [Concomitant]
     Route: 048

REACTIONS (2)
  - DEATH [None]
  - VASCULAR PURPURA [None]
